FAERS Safety Report 12897627 (Version 2)
Quarter: 2017Q1

REPORT INFORMATION
  Report Type: Report from Study
  Country: AU (occurrence: AU)
  Receive Date: 20161031
  Receipt Date: 20170216
  Transmission Date: 20170428
  Serious: Yes (Other)
  Sender: FDA-Public Use
  Company Number: AU-REGENERON PHARMACEUTICALS, INC.-2016-23120

PATIENT

DRUGS (2)
  1. EYLEA [Suspect]
     Active Substance: AFLIBERCEPT
     Dosage: 2 MG, Q6WK
     Route: 031
     Dates: start: 201604
  2. EYLEA [Suspect]
     Active Substance: AFLIBERCEPT
     Indication: NEOVASCULAR AGE-RELATED MACULAR DEGENERATION
     Dosage: 2 MG, Q8WK
     Route: 031

REACTIONS (5)
  - Neovascular age-related macular degeneration [Unknown]
  - Visual impairment [Unknown]
  - Lacrimation increased [Not Recovered/Not Resolved]
  - Foreign body sensation in eyes [Unknown]
  - Vitreous floaters [Unknown]

NARRATIVE: CASE EVENT DATE: 2016
